FAERS Safety Report 18654131 (Version 1)
Quarter: 2020Q4

REPORT INFORMATION
  Report Type: Other
  Country: US (occurrence: US)
  Receive Date: 20201223
  Receipt Date: 20201223
  Transmission Date: 20210114
  Serious: Yes (Other)
  Sender: FDA-Public Use
  Company Number: US-ROCHE-2736771

PATIENT
  Age: 66 Year
  Sex: Male
  Weight: 86.26 kg

DRUGS (8)
  1. EYLEA [Concomitant]
     Active Substance: AFLIBERCEPT
     Indication: MACULAR DEGENERATION
     Dosage: STARTED A COUPLE YEARS AGO ;ONGOING: YES
     Route: 050
  2. OCREVUS [Suspect]
     Active Substance: OCRELIZUMAB
     Dosage: HAD 2 HALF DOSES AND 2 FULL DOSES
     Route: 042
     Dates: start: 20181112
  3. FLOMAX [Concomitant]
     Active Substance: TAMSULOSIN HYDROCHLORIDE
     Indication: MICTURITION URGENCY
     Dosage: STARTED ABOUT 20 YEARS AGO ;ONGOING: YES
     Route: 048
  4. GABAPENTIN. [Concomitant]
     Active Substance: GABAPENTIN
     Indication: NEURALGIA
     Dosage: STARTED PROBABLY 1 YEAR AGO ;ONGOING: YES
     Route: 048
  5. PROZAC [Concomitant]
     Active Substance: FLUOXETINE HYDROCHLORIDE
     Indication: DEPRESSION
     Dosage: STARTED ABOUT 20 YEARS AGO ;ONGOING: YES
     Route: 048
  6. OCREVUS [Suspect]
     Active Substance: OCRELIZUMAB
     Indication: PRIMARY PROGRESSIVE MULTIPLE SCLEROSIS
     Dosage: HAD 2 HALF DOSES AND 2 FULL DOSES
     Route: 042
     Dates: start: 20181127
  7. FLEXERIL [Concomitant]
     Active Substance: CYCLOBENZAPRINE HYDROCHLORIDE
     Route: 048
  8. PRESERVISION [Concomitant]
     Active Substance: MINERALS\VITAMINS
     Indication: MACULAR DEGENERATION

REACTIONS (3)
  - Contusion [Recovered/Resolved]
  - COVID-19 [Recovered/Resolved]
  - Multiple sclerosis relapse [Recovered/Resolved]

NARRATIVE: CASE EVENT DATE: 202011
